FAERS Safety Report 6132229-9 (Version None)
Quarter: 2009Q1

REPORT INFORMATION
  Report Type: 
  Country: None (occurrence: None)
  Receive Date: 20090325
  Receipt Date: 20090305
  Transmission Date: 20090719
  Serious: Yes (Life-Threatening)
  Sender: FDA-Public Use
  Company Number: IT-PFIZER INC-2009179055

PATIENT

DRUGS (3)
  1. BLINDED *PLACEBO [Suspect]
     Dosage: UNK
     Route: 042
     Dates: start: 20090220, end: 20090305
  2. BLINDED ANIDULAFUNGIN [Suspect]
     Dosage: UNK
     Route: 042
     Dates: start: 20090220, end: 20090305
  3. VORICONAZOLE [Suspect]
     Dosage: UNK
     Route: 042
     Dates: start: 20090220, end: 20090305

REACTIONS (1)
  - SEPTIC SHOCK [None]
